FAERS Safety Report 14259956 (Version 1)
Quarter: 2017Q4

REPORT INFORMATION
  Report Type: Spontaneous
  Country: US (occurrence: US)
  Receive Date: 20171207
  Receipt Date: 20171207
  Transmission Date: 20180321
  Serious: No
  Sender: FDA-Public Use
  Company Number: US-VIFOR (INTERNATIONAL) INC.-VIT-2017-08644

PATIENT
  Sex: Female

DRUGS (10)
  1. LIOTHYRONINE SODIUM. [Concomitant]
     Active Substance: LIOTHYRONINE SODIUM
  2. IPRATROPIUM BROMIDE. [Concomitant]
     Active Substance: IPRATROPIUM BROMIDE
  3. HUMALOG [Concomitant]
     Active Substance: INSULIN LISPRO
  4. GABAPENTIN. [Concomitant]
     Active Substance: GABAPENTIN
  5. MYCOPHENOLATE MOFETIL. [Concomitant]
     Active Substance: MYCOPHENOLATE MOFETIL
  6. NEPHRO-VITE [Concomitant]
  7. LORATADINE. [Concomitant]
     Active Substance: LORATADINE
  8. VELTASSA [Suspect]
     Active Substance: PATIROMER
     Indication: HYPERKALAEMIA
     Route: 065
  9. MONTELUKAST SODIUM. [Concomitant]
     Active Substance: MONTELUKAST SODIUM
  10. MI-ACID GAS RELIEF [Concomitant]
     Active Substance: DIMETHICONE

REACTIONS (1)
  - Urinary tract infection [Unknown]
